FAERS Safety Report 11533891 (Version 2)
Quarter: 2015Q3

REPORT INFORMATION
  Report Type: Spontaneous
  Country: US (occurrence: US)
  Receive Date: 20150922
  Receipt Date: 20150930
  Transmission Date: 20151125
  Serious: Yes (Hospitalization)
  Sender: FDA-Public Use
  Company Number: US-HOSPIRA-3012355

PATIENT
  Age: 83 Year
  Sex: Female
  Weight: 88 kg

DRUGS (11)
  1. METOPROLOL XL SANDOZ [Concomitant]
     Indication: HYPERTENSION
     Dosage: DAILY
     Route: 048
     Dates: start: 2003, end: 20150909
  2. VALSARTAN. [Concomitant]
     Active Substance: VALSARTAN
     Indication: HYPERTENSION
     Dosage: DAILY
     Route: 048
     Dates: start: 2003, end: 20150909
  3. NORVASC [Concomitant]
     Active Substance: AMLODIPINE BESYLATE
     Indication: HYPERTENSION
     Dosage: DAILY
     Route: 048
     Dates: start: 2003, end: 20150909
  4. AMICAR [Concomitant]
     Active Substance: AMINOCAPROIC ACID
     Indication: HAEMORRHAGE
     Dosage: DAILY DOSAGE 1000 MG
     Route: 048
     Dates: start: 20150811, end: 20150909
  5. LIPITOR [Concomitant]
     Active Substance: ATORVASTATIN CALCIUM
     Indication: HYPERLIPIDAEMIA
     Dosage: DAILY
     Route: 048
     Dates: start: 2003, end: 20150909
  6. HYDREA [Concomitant]
     Active Substance: HYDROXYUREA
     Indication: PRODUCT USED FOR UNKNOWN INDICATION
  7. VITAMIN D                          /00107901/ [Concomitant]
     Active Substance: ERGOCALCIFEROL
     Indication: HYPOVITAMINOSIS
     Dosage: 1 TAB DAILY
     Route: 048
     Dates: end: 20150909
  8. CYTARABINE. [Suspect]
     Active Substance: CYTARABINE
     Indication: ACUTE MYELOID LEUKAEMIA
     Dosage: TWICE DAILY MORNING AND EVENING, 12 HRS APART ON DAYS 1-10 OF EACH 28-DAY CYCLE
     Route: 058
     Dates: start: 20150629
  9. LOSARTAN. [Concomitant]
     Active Substance: LOSARTAN
     Indication: PRODUCT USED FOR UNKNOWN INDICATION
  10. VITAMIN C [Concomitant]
     Active Substance: ASCORBIC ACID
     Indication: HYPOVITAMINOSIS
     Dosage: DAILY
     Route: 048
     Dates: end: 20150909
  11. AMICAR [Concomitant]
     Active Substance: AMINOCAPROIC ACID
     Indication: ORAL MUCOSAL BLISTERING
     Dosage: DAILY DOSAGE 1000 MG
     Route: 048
     Dates: start: 20150811, end: 20150909

REACTIONS (7)
  - Petechiae [Unknown]
  - Pancytopenia [Recovered/Resolved]
  - Tachycardia [Unknown]
  - Asthenia [Unknown]
  - Mouth ulceration [Unknown]
  - Fatigue [Unknown]
  - Dyspnoea [Unknown]

NARRATIVE: CASE EVENT DATE: 20150905
